FAERS Safety Report 16082864 (Version 1)
Quarter: 2019Q1

REPORT INFORMATION
  Report Type: Spontaneous
  Country: FR (occurrence: FR)
  Receive Date: 20190318
  Receipt Date: 20190318
  Transmission Date: 20190418
  Serious: Yes (Other)
  Sender: FDA-Public Use
  Company Number: FR-ZYDUS-029576

PATIENT
  Age: 53 Year
  Sex: Male

DRUGS (14)
  1. ZOPICLONE [Concomitant]
     Active Substance: ZOPICLONE
     Indication: PRODUCT USED FOR UNKNOWN INDICATION
     Route: 065
  2. OLANZAPINE. [Suspect]
     Active Substance: OLANZAPINE
     Indication: BIPOLAR DISORDER
     Route: 048
     Dates: start: 20141022
  3. OLANZAPINE. [Suspect]
     Active Substance: OLANZAPINE
     Indication: BIPOLAR DISORDER
     Route: 048
  4. HALDOL [Suspect]
     Active Substance: HALOPERIDOL
     Indication: BIPOLAR DISORDER
     Dosage: DOSAGE FORM: SOLUTION, 15-15-30 DROPS PER DAY
     Route: 048
     Dates: start: 20141022
  5. LOXAPAC [Suspect]
     Active Substance: LOXAPINE
     Indication: BIPOLAR DISORDER
     Route: 048
  6. TROPATEPINE [Concomitant]
     Active Substance: TROPATEPINE
     Indication: PRODUCT USED FOR UNKNOWN INDICATION
     Route: 065
  7. THERALENE [Suspect]
     Active Substance: TRIMEPRAZINE
     Indication: BIPOLAR DISORDER
     Dosage: DOSAGE FORM: UNSPECIFIED
     Route: 048
     Dates: start: 20141022
  8. TRAMADOL. [Suspect]
     Active Substance: TRAMADOL
     Indication: PAIN
     Dosage: 50 MG THREE TIMES A DAY
     Route: 048
  9. SODIUM LAURYL SULFATE [Concomitant]
     Active Substance: SODIUM LAURYL SULFATE
     Indication: PRODUCT USED FOR UNKNOWN INDICATION
     Route: 065
  10. MACROGOL [Concomitant]
     Active Substance: POLYETHYLENE GLYCOLS
     Indication: PRODUCT USED FOR UNKNOWN INDICATION
     Route: 065
  11. OLANZAPINE. [Suspect]
     Active Substance: OLANZAPINE
     Indication: BIPOLAR DISORDER
     Route: 048
     Dates: start: 20141014
  12. PARACETAMOL [Concomitant]
     Active Substance: ACETAMINOPHEN
     Indication: PRODUCT USED FOR UNKNOWN INDICATION
     Route: 065
  13. VALPROIC ACID. [Concomitant]
     Active Substance: VALPROIC ACID
     Indication: PRODUCT USED FOR UNKNOWN INDICATION
     Route: 065
  14. STERCULIA URENS/STERCULIA URENS GUM [Concomitant]
     Indication: PRODUCT USED FOR UNKNOWN INDICATION
     Route: 065

REACTIONS (5)
  - Faecaloma [Recovered/Resolved]
  - Vomiting [Unknown]
  - Constipation [Recovered/Resolved]
  - Intestinal obstruction [Recovered/Resolved]
  - Nausea [Unknown]

NARRATIVE: CASE EVENT DATE: 20141024
